FAERS Safety Report 8405941-6 (Version None)
Quarter: 2012Q2

REPORT INFORMATION
  Report Type: 
  Country: None (occurrence: None)
  Receive Date: 20120604
  Receipt Date: 20120522
  Transmission Date: 20120825
  Serious: Yes (Other)
  Sender: FDA-Public Use
  Company Number: BR-JNJFOC-20120518858

PATIENT
  Sex: Female
  Weight: 60 kg

DRUGS (9)
  1. PROMETHAZINE [Concomitant]
     Indication: BIPOLAR DISORDER
     Route: 048
     Dates: start: 20040101
  2. REMICADE [Concomitant]
     Route: 042
     Dates: start: 20100101
  3. REMICADE [Concomitant]
     Indication: CROHN'S DISEASE
     Route: 042
     Dates: start: 20120507
  4. HALOPERIDOL [Suspect]
     Indication: BIPOLAR DISORDER
     Route: 048
     Dates: start: 20040101
  5. REMICADE [Concomitant]
     Indication: ENTERITIS
     Route: 042
     Dates: start: 20120507
  6. CHLORPROMAZINE [Concomitant]
     Indication: BIPOLAR DISORDER
     Route: 048
     Dates: start: 20040101
  7. REMICADE [Concomitant]
     Route: 042
     Dates: start: 20100101
  8. REMICADE [Concomitant]
     Indication: INTESTINAL ULCER
     Route: 042
     Dates: start: 20120507
  9. REMICADE [Concomitant]
     Route: 042
     Dates: start: 20100101

REACTIONS (3)
  - ENTERITIS [None]
  - FATIGUE [None]
  - INTESTINAL ULCER [None]
